FAERS Safety Report 7234392-5 (Version None)
Quarter: 2011Q1

REPORT INFORMATION
  Report Type: 
  Country: None (occurrence: None)
  Receive Date: 20110119
  Receipt Date: 20110113
  Transmission Date: 20110831
  Serious: Yes (Death, Hospitalization)
  Sender: FDA-Public Use
  Company Number: DE-CEPHALON-2010002867

PATIENT
  Sex: Male
  Weight: 71 kg

DRUGS (5)
  1. LISINOPRIL COMP [Concomitant]
     Indication: HYPERTENSION
  2. BENDAMUSTINE HCL [Suspect]
     Indication: CHRONIC LYMPHOCYTIC LEUKAEMIA
     Dates: start: 20090928, end: 20091029
  3. SPIRO COMP [Concomitant]
     Indication: OEDEMA PERIPHERAL
     Dates: start: 20091109
  4. RITUXIMAB [Suspect]
     Indication: CHRONIC LYMPHOCYTIC LEUKAEMIA
     Dates: start: 20090930, end: 20091102
  5. AMOXICILLIN [Concomitant]
     Indication: INFECTION
     Dates: start: 20091109

REACTIONS (4)
  - SEPSIS [None]
  - PNEUMONIA [None]
  - PULMONARY EMBOLISM [None]
  - THROMBOSIS [None]
